FAERS Safety Report 9435804 (Version 1)
Quarter: 2013Q3

REPORT INFORMATION
  Report Type: Report from Study
  Country: US (occurrence: US)
  Receive Date: 20130801
  Receipt Date: 20130801
  Transmission Date: 20140515
  Serious: Yes (Hospitalization)
  Sender: FDA-Public Use
  Company Number: US-ROCHE-1253898

PATIENT
  Age: 38 Year
  Sex: Female

DRUGS (2)
  1. RITUXAN [Suspect]
     Indication: HAEMOLYTIC ANAEMIA
     Route: 042
     Dates: start: 20130722
  2. PREDNISONE [Concomitant]
     Route: 065
     Dates: start: 20130722

REACTIONS (15)
  - Urticaria [Unknown]
  - Oral pruritus [Unknown]
  - Lip swelling [Unknown]
  - Pruritus [Unknown]
  - Swelling face [Unknown]
  - Cough [Unknown]
  - Dyspnoea [Unknown]
  - Chest pain [Unknown]
  - Palpitations [Unknown]
  - Pyrexia [Unknown]
  - Asthenia [Unknown]
  - Vomiting [Unknown]
  - Dizziness [Unknown]
  - Insomnia [Unknown]
  - Bipolar I disorder [Not Recovered/Not Resolved]
